FAERS Safety Report 13699650 (Version 5)
Quarter: 2018Q2

REPORT INFORMATION
  Report Type: Spontaneous
  Country: US (occurrence: US)
  Receive Date: 20170629
  Receipt Date: 20180403
  Transmission Date: 20180711
  Serious: Yes (Life-Threatening, Hospitalization, Other)
  Sender: FDA-Public Use
  Company Number: US-BRISTOL-MYERS SQUIBB COMPANY-BMS-2017-055216

PATIENT
  Age: 64 Year
  Sex: Female

DRUGS (1)
  1. ELIQUIS [Suspect]
     Active Substance: APIXABAN
     Indication: CEREBROVASCULAR ACCIDENT PROPHYLAXIS
     Dosage: 1 TAB, BID
     Route: 048

REACTIONS (19)
  - Acute kidney injury [Recovering/Resolving]
  - Coagulopathy [Recovering/Resolving]
  - Hypomagnesaemia [Unknown]
  - Pericardial haemorrhage [Unknown]
  - Cardiogenic shock [Recovered/Resolved]
  - Anxiety [Unknown]
  - Insomnia [Unknown]
  - Hypokalaemia [Unknown]
  - Gastrointestinal haemorrhage [Recovered/Resolved]
  - Acute respiratory failure [Unknown]
  - Acute hepatic failure [Recovered/Resolved]
  - Obesity [Recovering/Resolving]
  - Hypothyroidism [Recovered/Resolved]
  - Pericardial effusion [Recovered/Resolved]
  - Anaemia [Not Recovered/Not Resolved]
  - Atrial fibrillation [Unknown]
  - Cardiac tamponade [Recovered/Resolved]
  - Thrombocytopenia [Recovered/Resolved]
  - Leukocytosis [Unknown]

NARRATIVE: CASE EVENT DATE: 201506
